FAERS Safety Report 10368252 (Version 2)
Quarter: 2014Q4

REPORT INFORMATION
  Report Type: Report from Study
  Country: KR (occurrence: KR)
  Receive Date: 20140807
  Receipt Date: 20141028
  Transmission Date: 20150528
  Serious: Yes (Hospitalization)
  Sender: FDA-Public Use
  Company Number: KR-SA-2014SA101847

PATIENT
  Age: 56 Year
  Sex: Male
  Weight: 72 kg

DRUGS (2)
  1. HUMALOG [Suspect]
     Active Substance: INSULIN LISPRO
     Indication: DIABETES MELLITUS
     Dosage: DOSE OF HUMALLOG- 34-38-36 UNIT
     Route: 058
     Dates: start: 20140623
  2. LANTUS [Suspect]
     Active Substance: INSULIN GLARGINE
     Indication: DIABETES MELLITUS
     Dosage: DOSE:54 UNIT(S)
     Route: 058
     Dates: start: 20140623

REACTIONS (2)
  - Hypoaesthesia [Not Recovered/Not Resolved]
  - Cerebral infarction [Not Recovered/Not Resolved]

NARRATIVE: CASE EVENT DATE: 201407
